FAERS Safety Report 5690004 (Version 2)
Quarter: 2013Q1

REPORT INFORMATION
  Report Type: Spontaneous
  Country: GB (occurrence: GB)
  Receive Date: 20041207
  Receipt Date: 20130311
  Transmission Date: 20140127
  Serious: Yes (Hospitalization, Other)
  Sender: FDA-Public Use
  Company Number: GB-ROCHE-387448

PATIENT
  Age: 15 Year
  Sex: Female

DRUGS (5)
  1. CLONAZEPAM [Suspect]
     Indication: ABNORMAL BEHAVIOUR
     Route: 048
     Dates: start: 20040914, end: 20041030
  2. CLOZARIL [Suspect]
     Indication: SCHIZOPHRENIA
     Route: 048
     Dates: start: 20040722, end: 20040927
  3. CLOZARIL [Suspect]
     Route: 048
  4. LITHIUM [Suspect]
     Indication: LEUKOCYTOSIS
     Route: 048
     Dates: start: 20040722, end: 20040927
  5. LITHIUM [Suspect]
     Route: 065

REACTIONS (22)
  - Viral infection [Recovered/Resolved]
  - Grand mal convulsion [Recovering/Resolving]
  - Toxicity to various agents [Recovering/Resolving]
  - Psychotic disorder [Not Recovered/Not Resolved]
  - Blood urea decreased [Unknown]
  - Blood potassium decreased [Unknown]
  - C-reactive protein increased [Recovered/Resolved]
  - Red blood cell sedimentation rate increased [Recovering/Resolving]
  - Full blood count abnormal [Unknown]
  - Hypotension [Recovered/Resolved]
  - Malaise [Recovered/Resolved]
  - Mycoplasma infection [Unknown]
  - Mycoplasma test positive [Unknown]
  - Neutrophil count decreased [Unknown]
  - Platelet count increased [Unknown]
  - Psychotic disorder [Not Recovered/Not Resolved]
  - Toxicity to various agents [Recovering/Resolving]
  - White blood cell count decreased [Unknown]
  - Pyrexia [Recovered/Resolved]
  - Fatigue [Recovered/Resolved]
  - Agitation [Recovered/Resolved]
  - Nausea [Recovered/Resolved]
